FAERS Safety Report 16394798 (Version 1)
Quarter: 2019Q2

REPORT INFORMATION
  Report Type: Spontaneous
  Country: US (occurrence: US)
  Receive Date: 20190430
  Receipt Date: 20190430
  Transmission Date: 20190711
  Serious: No
  Sender: FDA-Public Use
  Company Number: None

PATIENT
  Sex: Female

DRUGS (1)
  1. PROCRIT [Suspect]
     Active Substance: ERYTHROPOIETIN
     Indication: POLYNEUROPATHY
     Dosage: ?          OTHER DOSE:10,000 UNIT;OTHER FREQUENCY:Q21D;?
     Route: 058
     Dates: start: 20180214

REACTIONS (1)
  - Hair growth abnormal [None]
